FAERS Safety Report 7843730-1 (Version None)
Quarter: 2011Q4

REPORT INFORMATION
  Report Type: 
  Country: None (occurrence: None)
  Receive Date: 20111025
  Receipt Date: 20111019
  Transmission Date: 20120403
  Serious: Yes (Hospitalization)
  Sender: FDA-Public Use
  Company Number: SE-ROCHE-1006415

PATIENT
  Sex: Male

DRUGS (10)
  1. LUCENTIS [Suspect]
     Dates: start: 20110830
  2. PLENDIL [Concomitant]
  3. ZOLPIDEM [Concomitant]
  4. ASPIRIN [Concomitant]
  5. PERSANTIN [Concomitant]
  6. LUCENTIS [Suspect]
     Indication: AGE-RELATED MACULAR DEGENERATION
     Dosage: 10 MG/ML
     Dates: start: 20090401
  7. BISOPROLOL FUMARATE [Concomitant]
  8. AZOPT [Concomitant]
  9. TRAVATAN [Concomitant]
  10. SIMVASTATIN [Concomitant]

REACTIONS (1)
  - TRANSIENT ISCHAEMIC ATTACK [None]
